FAERS Safety Report 25087881 (Version 1)
Quarter: 2025Q1

REPORT INFORMATION
  Report Type: Spontaneous
  Country: CN (occurrence: CN)
  Receive Date: 20250318
  Receipt Date: 20250318
  Transmission Date: 20250408
  Serious: Yes (Death, Other)
  Sender: STRIDES
  Company Number: CN-STRIDES ARCOLAB LIMITED-2025SP003398

PATIENT

DRUGS (5)
  1. METHOTREXATE [Suspect]
     Active Substance: METHOTREXATE
     Indication: Acute lymphocytic leukaemia
     Route: 065
  2. METHOTREXATE [Suspect]
     Active Substance: METHOTREXATE
     Indication: Philadelphia chromosome positive
  3. METHOTREXATE [Suspect]
     Active Substance: METHOTREXATE
     Indication: Chemotherapy
  4. FLUMATINIB [Concomitant]
     Active Substance: FLUMATINIB
     Indication: Acute lymphocytic leukaemia
     Route: 065
  5. FLUMATINIB [Concomitant]
     Active Substance: FLUMATINIB
     Indication: Philadelphia chromosome positive

REACTIONS (4)
  - Multiple organ dysfunction syndrome [Fatal]
  - Myelosuppression [Fatal]
  - Sepsis [Fatal]
  - Bacillus infection [Fatal]
